FAERS Safety Report 7875223-X (Version None)
Quarter: 2011Q4

REPORT INFORMATION
  Report Type: 
  Country: None (occurrence: None)
  Receive Date: 20111031
  Receipt Date: 20111024
  Transmission Date: 20120403
  Serious: Yes (Death)
  Sender: FDA-Public Use
  Company Number: DE-ASTELLAS-2011EU001789

PATIENT
  Sex: Female
  Weight: 95 kg

DRUGS (7)
  1. NORADRENALIN [Concomitant]
     Indication: SEPTIC SHOCK
     Dosage: UNK
     Route: 065
     Dates: start: 20110331, end: 20110405
  2. MIDAZOLAM HCL [Concomitant]
     Indication: SEDATION
     Dosage: UNK
     Route: 065
     Dates: start: 20110404, end: 20110405
  3. BLINDED MICAFUNGIN INJECTION [Suspect]
     Indication: ABDOMINAL INFECTION
     Dosage: UNK MG, UID/QD
     Route: 042
     Dates: start: 20110401
  4. PROPOFOL [Concomitant]
     Indication: SEDATION
     Dosage: UNK
     Route: 065
     Dates: start: 20110331, end: 20110402
  5. HEPARIN [Concomitant]
     Indication: ANTICOAGULANT THERAPY
     Dosage: UNK
     Route: 065
     Dates: start: 20110401, end: 20110405
  6. INSULINE [Concomitant]
     Indication: HYPERGLYCAEMIA
     Dosage: UNK
     Route: 065
     Dates: start: 20110401, end: 20110405
  7. FUROSEMIDE [Concomitant]
     Indication: RENAL FAILURE
     Dosage: UNK
     Route: 065
     Dates: start: 20110401, end: 20110402

REACTIONS (2)
  - SEPTIC SHOCK [None]
  - MULTI-ORGAN FAILURE [None]
